FAERS Safety Report 18078669 (Version 4)
Quarter: 2024Q1

REPORT INFORMATION
  Report Type: Report from Study
  Country: AR (occurrence: AR)
  Receive Date: 20200728
  Receipt Date: 20240310
  Transmission Date: 20240410
  Serious: Yes (Life-Threatening, Hospitalization, Other)
  Sender: FDA-Public Use
  Company Number: AR-ABBVIE-20K-007-3499144-00

PATIENT
  Sex: Female

DRUGS (9)
  1. HUMIRA [Suspect]
     Active Substance: ADALIMUMAB
     Indication: Rheumatoid arthritis
     Dosage: FORM STRENGTH: 40 MG
     Route: 058
     Dates: start: 20131202, end: 201906
  2. HUMIRA [Suspect]
     Active Substance: ADALIMUMAB
     Dosage: FORM STRENGTH: 40 MG
     Route: 058
     Dates: end: 20200620
  3. PREDNISONE [Concomitant]
     Active Substance: PREDNISONE
     Indication: Rheumatoid arthritis
     Dosage: 4 MILLIGRAM
  4. FUROSEMIDE [Concomitant]
     Active Substance: FUROSEMIDE
     Indication: Product used for unknown indication
     Dosage: 40 MILLIGRAM
  5. METHOTREXATE [Concomitant]
     Active Substance: METHOTREXATE
     Indication: Product used for unknown indication
     Route: 030
     Dates: start: 201307
  6. ESOMEPRAZOLE [Concomitant]
     Active Substance: ESOMEPRAZOLE
     Indication: Product used for unknown indication
  7. LEVOTHYROXINE [Concomitant]
     Active Substance: LEVOTHYROXINE\LEVOTHYROXINE SODIUM
     Indication: Product used for unknown indication
  8. ERYTHROPOIETIN [Concomitant]
     Active Substance: ERYTHROPOIETIN
     Indication: Product used for unknown indication
     Route: 058
  9. VITAMIN B6 [Concomitant]
     Active Substance: PYRIDOXINE HYDROCHLORIDE
     Indication: Product used for unknown indication
     Dosage: 1 TABLET

REACTIONS (32)
  - Renal failure [Not Recovered/Not Resolved]
  - Proteinuria [Unknown]
  - Glomerulonephritis rapidly progressive [Unknown]
  - Renal injury [Not Recovered/Not Resolved]
  - Arthralgia [Unknown]
  - Physical disability [Unknown]
  - Headache [Not Recovered/Not Resolved]
  - Conjunctivitis [Unknown]
  - Arthralgia [Unknown]
  - Urine analysis abnormal [Recovered/Resolved]
  - Fatigue [Unknown]
  - Arthralgia [Unknown]
  - Gastrointestinal scarring [Not Recovered/Not Resolved]
  - Musculoskeletal stiffness [Unknown]
  - Tuberculin test positive [Unknown]
  - Oropharyngeal pain [Unknown]
  - Drug ineffective [Unknown]
  - Musculoskeletal discomfort [Unknown]
  - Skin reaction [Unknown]
  - Anxiety [Unknown]
  - Abdominal distension [Unknown]
  - Acute kidney injury [Not Recovered/Not Resolved]
  - Renal failure [Not Recovered/Not Resolved]
  - Depression [Unknown]
  - Eructation [Unknown]
  - Unevaluable event [Unknown]
  - Gastritis [Unknown]
  - Dyspepsia [Unknown]
  - Discomfort [Unknown]
  - Azotaemia [Unknown]
  - Renal impairment [Unknown]
  - Cardiovascular insufficiency [Unknown]

NARRATIVE: CASE EVENT DATE: 20140101
